FAERS Safety Report 7821317-4 (Version None)
Quarter: 2011Q4

REPORT INFORMATION
  Report Type: 
  Country: None (occurrence: None)
  Receive Date: 20111018
  Receipt Date: 20100928
  Transmission Date: 20120403
  Serious: No
  Sender: FDA-Public Use
  Company Number: US-ASTRAZENECA-2010SE45759

PATIENT
  Age: 67 Year
  Sex: Female
  Weight: 81.6 kg

DRUGS (4)
  1. VITAMIN D [Concomitant]
  2. OMEPRAZOLE [Concomitant]
  3. PREMARIN [Concomitant]
  4. SYMBICORT [Suspect]
     Indication: CHRONIC OBSTRUCTIVE PULMONARY DISEASE
     Dosage: 640 MCG DAILY
     Route: 055

REACTIONS (3)
  - VOMITING [None]
  - VASCULAR INJURY [None]
  - HEADACHE [None]
